FAERS Safety Report 21880505 (Version 1)
Quarter: 2023Q1

REPORT INFORMATION
  Report Type: Report from Study
  Country: US (occurrence: US)
  Receive Date: 20230118
  Receipt Date: 20230118
  Transmission Date: 20230417
  Serious: No
  Sender: FDA-Public Use
  Company Number: US-ABBVIE-4241803

PATIENT
  Age: 63 Year
  Sex: Female

DRUGS (8)
  1. RINVOQ [Suspect]
     Active Substance: UPADACITINIB
     Indication: Rheumatoid arthritis
     Route: 048
     Dates: start: 20221101
  2. CLARITIN 10 MG TABLET, [Concomitant]
     Indication: Product used for unknown indication
  3. ASPIRIN 325 MG TABLET [Concomitant]
     Indication: Product used for unknown indication
  4. METHOTREXATE SODIUM 25 tv1G/ML VIAL [Concomitant]
     Indication: Product used for unknown indication
  5. VITAMIN D3 25 MCG [Concomitant]
     Indication: Product used for unknown indication
  6. CALCIUM 600 MG TABLET [Concomitant]
     Indication: Product used for unknown indication
  7. DICLOFENAC SODIUM 3 % GEL (GRAM [Concomitant]
     Indication: Product used for unknown indication
  8. FOLIC ACID [Concomitant]
     Active Substance: FOLIC ACID
     Indication: Product used for unknown indication

REACTIONS (1)
  - Illness [Unknown]

NARRATIVE: CASE EVENT DATE: 20221201
